FAERS Safety Report 21391130 (Version 1)
Quarter: 2022Q3

REPORT INFORMATION
  Report Type: Spontaneous
  Country: US (occurrence: US)
  Receive Date: 20220929
  Receipt Date: 20220929
  Transmission Date: 20221027
  Serious: No
  Sender: FDA-Public Use
  Company Number: US-BRISTOL-MYERS SQUIBB COMPANY-2022-113023

PATIENT
  Age: 58 Year
  Sex: Male

DRUGS (3)
  1. ORENCIA [Suspect]
     Active Substance: ABATACEPT
     Indication: Rheumatoid arthritis
     Route: 058
     Dates: start: 202112
  2. ORENCIA [Suspect]
     Active Substance: ABATACEPT
     Indication: Pulmonary fibrosis
  3. ORENCIA [Suspect]
     Active Substance: ABATACEPT
     Indication: Emphysema

REACTIONS (2)
  - Joint swelling [Unknown]
  - Arthralgia [Unknown]
